FAERS Safety Report 5072356-0 (Version None)
Quarter: 2006Q3

REPORT INFORMATION
  Report Type: 
  Country: None (occurrence: None)
  Receive Date: 20060801
  Receipt Date: 20060721
  Transmission Date: 20061208
  Serious: Yes (Hospitalization, Other)
  Sender: FDA-Public Use
  Company Number: 2006BI010491

PATIENT
  Age: 58 Year
  Sex: Male

DRUGS (1)
  1. AVONEX [Suspect]
     Indication: MULTIPLE SCLEROSIS
     Dates: start: 19990101, end: 20010101

REACTIONS (4)
  - BLADDER DISORDER [None]
  - GASTROINTESTINAL DISORDER [None]
  - PROSTATE CANCER [None]
  - URINARY BLADDER EXCISION [None]
